FAERS Safety Report 24685295 (Version 1)
Quarter: 2024Q4

REPORT INFORMATION
  Report Type: Spontaneous
  Country: US (occurrence: None)
  Receive Date: 20241127
  Receipt Date: 20241127
  Transmission Date: 20250115
  Serious: Yes (Life-Threatening, Hospitalization)
  Sender: Public
  Company Number: None

PATIENT
  Age: 54 Year
  Sex: Male

DRUGS (1)
  1. LITHIUM CARBONATE [Suspect]
     Active Substance: LITHIUM CARBONATE
     Indication: Depression
     Dosage: FREQUENCY : TWICE A DAY;?
     Route: 048
     Dates: start: 20240619, end: 20240620

REACTIONS (4)
  - Confusional state [None]
  - Delirium [None]
  - Hallucination [None]
  - Aggression [None]

NARRATIVE: CASE EVENT DATE: 20240620
